FAERS Safety Report 24324703 (Version 6)
Quarter: 2025Q3

REPORT INFORMATION
  Report Type: Report from Study
  Country: US (occurrence: US)
  Receive Date: 20240916
  Receipt Date: 20250828
  Transmission Date: 20251020
  Serious: Yes (Other)
  Sender: SUNOVION
  Company Number: US-SUMITOMO PHARMA SWITZERLAND GMBH-2024SPA002200

PATIENT
  Age: 68 Year
  Sex: Male

DRUGS (3)
  1. ORGOVYX [Suspect]
     Active Substance: RELUGOLIX
     Indication: Prostate cancer
     Dosage: 360 MG, SINGLE
     Route: 048
     Dates: start: 20240815, end: 20240815
  2. ORGOVYX [Suspect]
     Active Substance: RELUGOLIX
     Dosage: 120 MG, ONCE QD
     Route: 048
     Dates: start: 20240816
  3. VIAGRA [Concomitant]
     Active Substance: SILDENAFIL CITRATE

REACTIONS (12)
  - Prostatic operation [Unknown]
  - Tooth extraction [Unknown]
  - Nodular rash [Unknown]
  - Urethral disorder [Unknown]
  - Pruritus [Unknown]
  - Oral pain [Unknown]
  - Gait disturbance [Unknown]
  - Dyspepsia [Unknown]
  - Hyperhidrosis [Unknown]
  - Arthritis [Unknown]
  - Myalgia [Unknown]
  - Product use complaint [Unknown]
